FAERS Safety Report 13991701 (Version 4)
Quarter: 2024Q1

REPORT INFORMATION
  Report Type: Spontaneous
  Country: US (occurrence: US)
  Receive Date: 20170920
  Receipt Date: 20240103
  Transmission Date: 20240410
  Serious: No
  Sender: FDA-Public Use
  Company Number: US-JNJFOC-20170809008

PATIENT
  Sex: Male

DRUGS (25)
  1. RISPERDAL [Suspect]
     Active Substance: RISPERIDONE
     Indication: Agitation
     Dosage: IN VARYING DOSES OF 2 MG AND 3 MG
     Route: 048
     Dates: start: 20091015, end: 20130227
  2. RISPERDAL [Suspect]
     Active Substance: RISPERIDONE
     Indication: Attention deficit hyperactivity disorder
  3. RISPERDAL [Suspect]
     Active Substance: RISPERIDONE
     Indication: Oppositional defiant disorder
  4. RISPERDAL [Suspect]
     Active Substance: RISPERIDONE
     Indication: Drug therapy
  5. RISPERDAL [Suspect]
     Active Substance: RISPERIDONE
     Indication: Insomnia
  6. RISPERIDONE [Suspect]
     Active Substance: RISPERIDONE
     Indication: Attention deficit hyperactivity disorder
     Dosage: IN VARYING DOSES OF 1 MG, 2 MG, 3 MG AND 4 MG
     Route: 048
     Dates: start: 20091015, end: 20130227
  7. RISPERIDONE [Suspect]
     Active Substance: RISPERIDONE
     Indication: Oppositional defiant disorder
  8. RISPERIDONE [Suspect]
     Active Substance: RISPERIDONE
     Indication: Drug therapy
  9. RISPERIDONE [Suspect]
     Active Substance: RISPERIDONE
     Indication: Insomnia
  10. RISPERIDONE [Suspect]
     Active Substance: RISPERIDONE
     Indication: Agitation
  11. RISPERDAL M-TAB [Suspect]
     Active Substance: RISPERIDONE
     Indication: Attention deficit hyperactivity disorder
     Dosage: IN VARYING DOSES OF 1 MG AND 2 MG
     Route: 048
     Dates: start: 20120501, end: 20130201
  12. RISPERDAL M-TAB [Suspect]
     Active Substance: RISPERIDONE
     Indication: Oppositional defiant disorder
  13. RISPERDAL M-TAB [Suspect]
     Active Substance: RISPERIDONE
     Indication: Drug therapy
  14. RISPERDAL M-TAB [Suspect]
     Active Substance: RISPERIDONE
     Indication: Insomnia
  15. RISPERDAL M-TAB [Suspect]
     Active Substance: RISPERIDONE
     Indication: Agitation
  16. RISPERDAL M-TAB [Suspect]
     Active Substance: RISPERIDONE
     Indication: Aggression
  17. INVEGA [Suspect]
     Active Substance: PALIPERIDONE
     Indication: Mental disorder
     Route: 048
     Dates: start: 2017
  18. RISPERIDONE [Suspect]
     Active Substance: RISPERIDONE
     Indication: Aggression
     Dosage: IN VARYING DOSES OF 1 MG AND 2 MG
     Route: 048
     Dates: start: 20120423, end: 20130201
  19. RISPERIDONE [Suspect]
     Active Substance: RISPERIDONE
     Indication: Attention deficit hyperactivity disorder
  20. RISPERIDONE [Suspect]
     Active Substance: RISPERIDONE
     Indication: Oppositional defiant disorder
  21. RISPERIDONE [Suspect]
     Active Substance: RISPERIDONE
     Indication: Drug therapy
  22. RISPERIDONE [Suspect]
     Active Substance: RISPERIDONE
     Indication: Insomnia
  23. RISPERIDONE [Suspect]
     Active Substance: RISPERIDONE
     Indication: Agitation
  24. RISPERIDONE [Suspect]
     Active Substance: RISPERIDONE
     Indication: Anger
     Route: 048
  25. RISPERIDONE [Suspect]
     Active Substance: RISPERIDONE
     Indication: Affective disorder

REACTIONS (4)
  - Weight increased [Recovering/Resolving]
  - Emotional distress [Unknown]
  - Gynaecomastia [Unknown]
  - Sleep disorder [Unknown]
